FAERS Safety Report 14355514 (Version 6)
Quarter: 2018Q3

REPORT INFORMATION
  Report Type: Spontaneous
  Country: FR (occurrence: FR)
  Receive Date: 20180105
  Receipt Date: 20180926
  Transmission Date: 20181010
  Serious: Yes (Hospitalization, Other)
  Sender: FDA-Public Use
  Company Number: FR-PFIZER INC-2017552709

PATIENT
  Age: 63 Year
  Sex: Male
  Weight: 71 kg

DRUGS (12)
  1. THERALENE [Suspect]
     Active Substance: TRIMEPRAZINE
     Dosage: 60 ML (TWO 30 ML FLASKS), UNK
     Route: 048
     Dates: start: 20171015, end: 20171015
  2. CLOMIPRAMINE HYDROCHLORIDE. [Concomitant]
     Active Substance: CLOMIPRAMINE HYDROCHLORIDE
     Dosage: 2 DF (150 MG), AT BEDTIME
  3. INDAPAMIDE/PERINDOPRIL [Concomitant]
     Dosage: UNK, 1X/DAY (MORNING)
  4. GANFORT [Concomitant]
     Active Substance: BIMATOPROST\TIMOLOL
     Dosage: 1 GTT, 1X/DAY (10:00 PM)
  5. VENLAFAXINE HCL [Suspect]
     Active Substance: VENLAFAXINE HYDROCHLORIDE
     Dosage: UNK
     Route: 048
     Dates: start: 20171015, end: 20171015
  6. MIRTAZAPINE. [Suspect]
     Active Substance: MIRTAZAPINE
     Dosage: 30 TABLETS OF MIRTAZAPINE 15 MG, SINGLE
     Route: 048
     Dates: start: 20171015, end: 20171015
  7. ALIMEMAZINE TARTRATE [Concomitant]
     Active Substance: TRIMEPRAZINE
     Dosage: 30 GTT, 1X/DAY
  8. TERCIAN [CYAMEMAZINE] [Suspect]
     Active Substance: CYAMEMAZINE
     Dosage: 90 ML (THREE 30 ML FLASKS), UNK
     Route: 048
     Dates: start: 20171015, end: 20171015
  9. EUCREAS [Concomitant]
     Active Substance: METFORMIN HYDROCHLORIDE\VILDAGLIPTIN
     Dosage: UNK, 2X/DAY (MORNING AND EVENING)
  10. CLOMIPRAMINE [Suspect]
     Active Substance: CLOMIPRAMINE
     Dosage: 50 DF, SINGLE
     Route: 048
     Dates: start: 20171015, end: 20171015
  11. METFORMIN [Concomitant]
     Active Substance: METFORMIN HYDROCHLORIDE
     Dosage: 1000 MG, 1X/DAY (NOON)
  12. SIMBRINZA [Concomitant]
     Active Substance: BRIMONIDINE TARTRATE\BRINZOLAMIDE
     Dosage: 1 GTT, 2X/DAY (MORNING AND EVENING)

REACTIONS (5)
  - Miosis [Recovered/Resolved]
  - Intentional overdose [Recovered/Resolved]
  - Suicide attempt [Unknown]
  - Coma [Recovered/Resolved]
  - Extrapyramidal disorder [Recovered/Resolved]

NARRATIVE: CASE EVENT DATE: 20171015
